FAERS Safety Report 4392469-6 (Version None)
Quarter: 2004Q3

REPORT INFORMATION
  Report Type: 
  Country: None (occurrence: None)
  Receive Date: 20040702
  Receipt Date: 20040624
  Transmission Date: 20050211
  Serious: Yes (Hospitalization)
  Sender: FDA-Public Use
  Company Number: US-JNJFOC-20040607138

PATIENT
  Age: 56 Year
  Sex: Male

DRUGS (2)
  1. DURAGESIC [Suspect]
     Indication: PAIN
     Dosage: 125 UG/HR, TRANSDERMAL; SEE IMAGE
     Route: 062
     Dates: end: 20020101
  2. DURAGESIC [Suspect]
     Indication: PAIN
     Dosage: 125 UG/HR, TRANSDERMAL; SEE IMAGE
     Route: 062
     Dates: start: 20040501

REACTIONS (1)
  - CHRONIC OBSTRUCTIVE AIRWAYS DISEASE EXACERBATED [None]
